FAERS Safety Report 7120845-7 (Version None)
Quarter: 2010Q4

REPORT INFORMATION
  Report Type: 
  Country: None (occurrence: None)
  Receive Date: 20101124
  Receipt Date: 20091218
  Transmission Date: 20110411
  Serious: No
  Sender: FDA-Public Use
  Company Number: US-PFIZER INC-2009293867

PATIENT
  Sex: Male

DRUGS (3)
  1. TIKOSYN [Suspect]
  2. DOXYCYCLINE CALCIUM [Suspect]
     Indication: INFECTION
  3. CEPHALEXIN [Suspect]
     Indication: TOOTH INFECTION

REACTIONS (3)
  - BRONCHITIS [None]
  - DRUG INEFFECTIVE [None]
  - TOOTH INFECTION [None]
